FAERS Safety Report 7456089-9 (Version None)
Quarter: 2011Q2

REPORT INFORMATION
  Report Type: 
  Country: None (occurrence: None)
  Receive Date: 20110503
  Receipt Date: 20110426
  Transmission Date: 20111010
  Serious: No
  Sender: FDA-Public Use
  Company Number: US-PFIZER INC-2011045865

PATIENT
  Age: 61 Year
  Sex: Male

DRUGS (25)
  1. NEORAL [Concomitant]
     Dosage: 100 MG, 3X/DAY
     Route: 048
  2. MYCOPHENOLATE MOFETIL [Concomitant]
     Dosage: 1000 MG, 2X/DAY
     Route: 048
  3. VITAMIN D [Concomitant]
     Dosage: 3 DF, DAILY
     Route: 048
  4. ONGLYZA [Concomitant]
  5. LEVOTHYROXINE [Concomitant]
     Dosage: 0.075 MG, 1X/DAY
     Route: 048
  6. TYLENOL (CAPLET) [Concomitant]
     Indication: PAIN
     Dosage: 1300 MG, 3X/DAY
     Route: 048
  7. VITAMIN D [Concomitant]
     Dosage: 1200 MG, 2X/DAY
     Route: 048
  8. CYCLOBENZAPRINE [Concomitant]
     Dosage: 5 MG, 1X/DAY
     Route: 048
  9. ACETYLCYSTEINE [Concomitant]
     Dosage: 800 MG, 2X/DAY
     Route: 048
  10. MAGNESIUM OXIDE [Concomitant]
     Dosage: 400 MG, 2X/DAY
     Route: 048
  11. TOPROL-XL [Concomitant]
     Dosage: 50 MG, 1X/DAY
     Route: 048
  12. TERIPARATIDE [Concomitant]
     Dosage: 20 MG, 1X/DAY
  13. DEPO-TESTOSTERONE [Suspect]
     Indication: HYPOGONADISM
     Dosage: 200 MG, EVERY 2 WEEKS
     Route: 030
     Dates: start: 20110210, end: 20110224
  14. LIDODERM [Concomitant]
     Dosage: 1 DF, DAILY
     Route: 061
  15. LOVAZA [Concomitant]
     Dosage: 2 DF, DAILY
     Route: 048
  16. LIPITOR [Concomitant]
     Dosage: 80 MG, DAILY
     Route: 048
  17. GABAPENTIN [Concomitant]
     Dosage: 300 MG, 3X/DAY
     Route: 048
  18. VITAMIN E [Concomitant]
     Dosage: 1 DF, 1X/DAY
     Route: 048
  19. ACIPHEX [Concomitant]
     Dosage: 20 MG, 1X/DAY
     Route: 048
  20. CLONAZEPAM [Concomitant]
     Dosage: 0.5 MG, 1X/DAY
     Route: 048
  21. TRAMADOL [Concomitant]
     Indication: PAIN
     Dosage: 50 MG, AS NEEDED
  22. ZOLEDRONIC ACID [Concomitant]
     Route: 042
  23. HYDRALAZINE [Concomitant]
     Dosage: 100 MG, 3X/DAY
     Route: 048
  24. ASPIRIN [Concomitant]
     Dosage: 81 MG, 1X/DAY
     Route: 048
  25. CITALOPRAM [Concomitant]
     Dosage: 40 MG, UNK
     Route: 048

REACTIONS (4)
  - INJECTION SITE ERYTHEMA [None]
  - DYSSTASIA [None]
  - INJECTION SITE PAIN [None]
  - INJECTION SITE MASS [None]
